FAERS Safety Report 5890010-X (Version None)
Quarter: 2008Q3

REPORT INFORMATION
  Report Type: 
  Country: None (occurrence: None)
  Receive Date: 20080919
  Receipt Date: 20080911
  Transmission Date: 20090109
  Serious: Yes (Hospitalization)
  Sender: FDA-Public Use
  Company Number: NL-PFIZER INC-2004206965NL

PATIENT
  Sex: Female
  Weight: 47 kg

DRUGS (3)
  1. CAMPTOSAR [Suspect]
     Indication: SMALL CELL LUNG CANCER STAGE UNSPECIFIED
     Dosage: DAILY DOSE:65MG/M2-FREQ:DAY 1 AND 8 EVERY 3 WEEKS
     Route: 042
     Dates: start: 20040212, end: 20040212
  2. CISPLATIN [Suspect]
     Indication: SMALL CELL LUNG CANCER STAGE UNSPECIFIED
     Dosage: DAILY DOSE:80MG/M2-FREQ:DAY 1 EVERY 3 WEEKS
     Route: 042
     Dates: start: 20040212, end: 20040212
  3. I.V. SOLUTIONS [Concomitant]

REACTIONS (3)
  - CIRCULATORY COLLAPSE [None]
  - DEHYDRATION [None]
  - DIARRHOEA [None]
